FAERS Safety Report 13304383 (Version 4)
Quarter: 2017Q3

REPORT INFORMATION
  Report Type: Spontaneous
  Country: JP (occurrence: JP)
  Receive Date: 20170308
  Receipt Date: 20170721
  Transmission Date: 20171127
  Serious: Yes (Life-Threatening, Hospitalization, Disabling)
  Sender: FDA-Public Use
  Company Number: JP-UCBSA-2017007927

PATIENT
  Age: 77 Year
  Sex: Female
  Weight: 45 kg

DRUGS (4)
  1. CIMZIA [Suspect]
     Active Substance: CERTOLIZUMAB PEGOL
     Dosage: 400 MG, EV 2 WEEKS(QOW)
     Route: 058
     Dates: start: 20161207, end: 20170104
  2. IGURATIMOD [Concomitant]
     Active Substance: IGURATIMOD
     Indication: RHEUMATOID ARTHRITIS
     Dosage: 25 MG, 2X/DAY (BID)
     Route: 048
     Dates: start: 20160526, end: 20170104
  3. CIMZIA [Suspect]
     Active Substance: CERTOLIZUMAB PEGOL
     Indication: RHEUMATOID ARTHRITIS
     Dosage: 200 MG, EV 2 WEEKS(QOW)
     Route: 058
     Dates: start: 20160804, end: 20161004
  4. PREDNISOLONE. [Suspect]
     Active Substance: PREDNISOLONE
     Indication: RHEUMATOID ARTHRITIS
     Dosage: 4 MG, ONCE DAILY (QD)
     Route: 048
     Dates: start: 201411

REACTIONS (4)
  - Fall [Recovered/Resolved]
  - Off label use [Unknown]
  - Disseminated tuberculosis [Not Recovered/Not Resolved]
  - Femur fracture [Not Recovered/Not Resolved]

NARRATIVE: CASE EVENT DATE: 20160804
